FAERS Safety Report 18754634 (Version 1)
Quarter: 2021Q1

REPORT INFORMATION
  Report Type: Spontaneous
  Country: AU (occurrence: AU)
  Receive Date: 20210119
  Receipt Date: 20210119
  Transmission Date: 20210419
  Serious: Yes (Other)
  Sender: FDA-Public Use
  Company Number: AU-JNJFOC-20210111766

PATIENT
  Age: 43 Year
  Sex: Female
  Weight: 111 kg

DRUGS (8)
  1. HALOPERIDOL. [Suspect]
     Active Substance: HALOPERIDOL
     Indication: SCHIZOPHRENIA
     Route: 065
     Dates: end: 20200630
  2. ASENAPINE. [Suspect]
     Active Substance: ASENAPINE
     Indication: PSYCHOTIC DISORDER
     Route: 065
  3. ARIPIPRAZOLE. [Suspect]
     Active Substance: ARIPIPRAZOLE
     Route: 030
  4. ESOMEPRAZOLE. [Suspect]
     Active Substance: ESOMEPRAZOLE MAGNESIUM
     Route: 048
  5. HALOPERIDOL. [Suspect]
     Active Substance: HALOPERIDOL
     Indication: SUBSTANCE-INDUCED PSYCHOTIC DISORDER
  6. FERROGRADUMET [Suspect]
     Active Substance: FERROUS SULFATE
     Route: 065
  7. VENLAFAXINE [Suspect]
     Active Substance: VENLAFAXINE HYDROCHLORIDE
     Route: 065
     Dates: start: 20201024
  8. METFORMIN [Concomitant]
     Active Substance: METFORMIN HYDROCHLORIDE
     Indication: TYPE 2 DIABETES MELLITUS
     Route: 065
     Dates: start: 2019

REACTIONS (3)
  - Delusion [Unknown]
  - Substance abuse [Unknown]
  - Psychotic symptom [Unknown]
